FAERS Safety Report 6383319-7 (Version None)
Quarter: 2009Q4

REPORT INFORMATION
  Report Type: 
  Country: None (occurrence: None)
  Receive Date: 20091001
  Receipt Date: 20090921
  Transmission Date: 20100525
  Serious: Yes (Hospitalization)
  Sender: FDA-Public Use
  Company Number: US-BIOGENIDEC-2009BI024992

PATIENT
  Age: 63 Year
  Sex: Female

DRUGS (2)
  1. AVONEX [Suspect]
     Indication: MULTIPLE SCLEROSIS
     Route: 030
     Dates: start: 20000701
  2. AVONEX [Suspect]
     Route: 030
     Dates: start: 20081110, end: 20090501

REACTIONS (6)
  - BALANCE DISORDER [None]
  - BLADDER DISORDER [None]
  - FALL [None]
  - HYPOTENSION [None]
  - URINARY TRACT INFECTION [None]
  - VESTIBULAR DISORDER [None]
